FAERS Safety Report 7270216-8 (Version None)
Quarter: 2010Q4

REPORT INFORMATION
  Report Type: 
  Country: None (occurrence: None)
  Receive Date: 20101130
  Receipt Date: 20091203
  Transmission Date: 20110411
  Serious: Yes (Hospitalization, Other)
  Sender: FDA-Public Use
  Company Number: 2009-198574-NL

PATIENT
  Age: 32 Year
  Sex: Female
  Weight: 45.3597 kg

DRUGS (2)
  1. NUVARING [Suspect]
     Indication: DYSMENORRHOEA
     Dosage: VAG
     Route: 067
     Dates: start: 20071201, end: 20071219
  2. NUVARING [Suspect]
     Indication: MENORRHAGIA
     Dosage: VAG
     Route: 067
     Dates: start: 20071201, end: 20071219

REACTIONS (5)
  - BACK PAIN [None]
  - HAEMATURIA [None]
  - HYPOTENSION [None]
  - PULMONARY EMBOLISM [None]
  - SUBCUTANEOUS NODULE [None]
